FAERS Safety Report 4701223-4 (Version None)
Quarter: 2005Q2

REPORT INFORMATION
  Report Type: 
  Country: None (occurrence: None)
  Receive Date: 20050627
  Receipt Date: 20050627
  Transmission Date: 20051028
  Serious: Yes (Other)
  Sender: FDA-Public Use
  Company Number: None

PATIENT
  Age: 48 Year
  Sex: Female
  Weight: 160 kg

DRUGS (8)
  1. GEODON [Suspect]
     Indication: BIPOLAR DISORDER
     Dosage: SEE IMAGE
     Dates: start: 20050509
  2. GEODON [Suspect]
     Indication: BIPOLAR DISORDER
     Dosage: SEE IMAGE
     Dates: start: 20050510
  3. GEODON [Suspect]
     Indication: BIPOLAR DISORDER
     Dosage: SEE IMAGE
     Dates: start: 20050523
  4. GEODON [Suspect]
     Indication: BIPOLAR DISORDER
     Dosage: SEE IMAGE
     Dates: start: 20051214
  5. ZOLOFT [Suspect]
  6. REQUIP [Concomitant]
  7. LAMICIAL [Concomitant]
  8. LEXAPRO [Concomitant]

REACTIONS (3)
  - AKATHISIA [None]
  - BURNING SENSATION [None]
  - RESTLESS LEGS SYNDROME [None]
